FAERS Safety Report 16846276 (Version 3)
Quarter: 2024Q3

REPORT INFORMATION
  Report Type: Spontaneous
  Country: US (occurrence: US)
  Receive Date: 20190924
  Receipt Date: 20240918
  Transmission Date: 20241017
  Serious: No
  Sender: SANOFI AVENTIS
  Company Number: US-SA-2019SA262446

PATIENT
  Age: 14 Year
  Sex: Male

DRUGS (1)
  1. DUPIXENT [Suspect]
     Active Substance: DUPILUMAB
     Indication: Dermatitis allergic
     Dosage: 300 MG, QOW
     Route: 058
     Dates: start: 20190717, end: 201912

REACTIONS (4)
  - Rash [Not Recovered/Not Resolved]
  - Dermatitis allergic [Unknown]
  - Condition aggravated [Unknown]
  - Intentional dose omission [Unknown]
